FAERS Safety Report 8770782 (Version 2)
Quarter: 2012Q4

REPORT INFORMATION
  Report Type: 
  Country: US (occurrence: US)
  Receive Date: 20120906
  Receipt Date: 20121017
  Transmission Date: 20130627
  Serious: No
  Sender: FDA-Public Use
  Company Number: US-009507513-1208USA012088

PATIENT
  Age: 63 Year
  Sex: Female
  Weight: 72.56 kg

DRUGS (12)
  1. MIRALAX [Suspect]
     Indication: ENDOSCOPY GASTROINTESTINAL
     Dosage: 68 g, Once
     Route: 048
  2. MIRALAX [Suspect]
     Indication: MEDICAL OBSERVATION
  3. INSULIN LISPRO, ISOPHANE [Concomitant]
     Indication: DIABETES MELLITUS
     Dosage: UNK, Unknown
  4. CAPTOPRIL [Concomitant]
     Indication: HYPERTENSION
     Dosage: UNK, Unknown
  5. ASACOL [Concomitant]
     Indication: GASTROOESOPHAGEAL REFLUX DISEASE
     Dosage: UNK, Unknown
  6. LANZOPRAZOL [Concomitant]
     Indication: GASTROOESOPHAGEAL REFLUX DISEASE
     Dosage: UNK, Unknown
  7. FENOFIBRATE [Concomitant]
     Indication: PRODUCT USED FOR UNKNOWN INDICATION
     Dosage: UNK, Unknown
  8. METAMUCIL [Concomitant]
     Indication: COLITIS
     Dosage: UNK, Unknown
  9. LEVOTHYROXINE SODIUM [Concomitant]
     Indication: THYROID DISORDER
     Dosage: UNK, Unknown
  10. VIACTIV SOFT CALCIUM CHEWS [Concomitant]
     Indication: PRODUCT USED FOR UNKNOWN INDICATION
     Dosage: UNK, Unknown
  11. OMEGA-3 MARINE TRIGLYCERIDES [Concomitant]
     Indication: PRODUCT USED FOR UNKNOWN INDICATION
     Dosage: UNK, Unknown
  12. CYANOCOBALAMIN [Concomitant]
     Indication: PRODUCT USED FOR UNKNOWN INDICATION
     Dosage: UNK, Unknown

REACTIONS (4)
  - Nausea [Recovered/Resolved]
  - Dizziness [Recovered/Resolved]
  - Overdose [Unknown]
  - Off label use [Unknown]
